FAERS Safety Report 22357427 (Version 4)
Quarter: 2023Q4

REPORT INFORMATION
  Report Type: Report from Study
  Country: BE (occurrence: BE)
  Receive Date: 20230524
  Receipt Date: 20231120
  Transmission Date: 20240109
  Serious: Yes (Other)
  Sender: FDA-Public Use
  Company Number: BE-JNJFOC-20230546054

PATIENT
  Age: 43 Year
  Sex: Male

DRUGS (21)
  1. SPRAVATO [Suspect]
     Active Substance: ESKETAMINE
     Indication: Depression
     Dosage: 56 MG (2 DEVICES)
     Dates: start: 20230306, end: 20230306
  2. SPRAVATO [Suspect]
     Active Substance: ESKETAMINE
     Dosage: 84 MG (3 DEVICES)
     Dates: start: 20230309, end: 20230309
  3. SPRAVATO [Suspect]
     Active Substance: ESKETAMINE
     Dosage: 84 MG (3 DEVICES)
     Dates: start: 20230313, end: 20230313
  4. SPRAVATO [Suspect]
     Active Substance: ESKETAMINE
     Dosage: 84 MG (3 DEVICES)
     Dates: start: 20230316, end: 20230316
  5. SPRAVATO [Suspect]
     Active Substance: ESKETAMINE
     Dosage: 84 MG (3 DEVICES)
     Dates: start: 20230320, end: 20230320
  6. SPRAVATO [Suspect]
     Active Substance: ESKETAMINE
     Dosage: 84 MG (3 DEVICES)
     Dates: start: 20230323, end: 20230323
  7. SPRAVATO [Suspect]
     Active Substance: ESKETAMINE
     Dosage: 84 MG (3 DEVICES)
     Dates: start: 20230327, end: 20230327
  8. SPRAVATO [Suspect]
     Active Substance: ESKETAMINE
     Dosage: 84 MG (3 DEVICES)
     Dates: start: 20230331, end: 20230331
  9. SPRAVATO [Suspect]
     Active Substance: ESKETAMINE
     Dosage: 84 MG (3 DEVICES)
     Dates: start: 20230406, end: 20230406
  10. SPRAVATO [Suspect]
     Active Substance: ESKETAMINE
     Dosage: 84 MG (3 DEVICES)
     Dates: start: 20230413, end: 20230413
  11. SPRAVATO [Suspect]
     Active Substance: ESKETAMINE
     Dosage: 84 MG (3 DEVICES)
     Dates: start: 20230420, end: 20230420
  12. SPRAVATO [Suspect]
     Active Substance: ESKETAMINE
     Dosage: 84 MG (3 DEVICES)
     Dates: start: 20230424, end: 20230424
  13. SPRAVATO [Suspect]
     Active Substance: ESKETAMINE
     Dosage: 84 MG (3 DEVICES)
     Dates: start: 20230504, end: 20230504
  14. SPRAVATO [Suspect]
     Active Substance: ESKETAMINE
     Dosage: 84 MG (3 DEVICES)
     Dates: start: 20230511, end: 20230511
  15. SPRAVATO [Suspect]
     Active Substance: ESKETAMINE
     Dosage: 84 MG (3 DEVICES)
     Dates: start: 20230518, end: 20230518
  16. SPRAVATO [Suspect]
     Active Substance: ESKETAMINE
     Dosage: 84 MG (3 DEVICES)
     Dates: start: 20230526, end: 20230526
  17. SPRAVATO [Suspect]
     Active Substance: ESKETAMINE
     Dosage: 84 MG (3 DEVICES)
     Dates: start: 20230601, end: 20230601
  18. SPRAVATO [Suspect]
     Active Substance: ESKETAMINE
     Dosage: 84 MG (3 DEVICES)
     Dates: start: 20230608, end: 20230608
  19. SPRAVATO [Suspect]
     Active Substance: ESKETAMINE
     Dosage: 84 MG (3 DEVICES)
     Dates: start: 20230615, end: 20230615
  20. SPRAVATO [Suspect]
     Active Substance: ESKETAMINE
     Dosage: 84 MG (3 DEVICES)
     Dates: start: 20230622, end: 20230622
  21. SPRAVATO [Suspect]
     Active Substance: ESKETAMINE
     Dosage: 84 MG (3 DEVICES)
     Dates: start: 20230629, end: 20230629

REACTIONS (2)
  - Hallucination [Recovered/Resolved]
  - Anxiety [Recovered/Resolved]

NARRATIVE: CASE EVENT DATE: 20230511
